FAERS Safety Report 8344016-1 (Version None)
Quarter: 2012Q2

REPORT INFORMATION
  Report Type: 
  Country: None (occurrence: None)
  Receive Date: 20120504
  Receipt Date: 20120423
  Transmission Date: 20120825
  Serious: Yes (Hospitalization)
  Sender: FDA-Public Use
  Company Number: 2012PL000078

PATIENT
  Sex: Female

DRUGS (1)
  1. LOTRONEX [Suspect]
     Indication: PRODUCT USED FOR UNKNOWN INDICATION
     Dosage: PO
     Route: 048

REACTIONS (1)
  - COLITIS ISCHAEMIC [None]
